FAERS Safety Report 11492253 (Version 1)
Quarter: 2015Q3

REPORT INFORMATION
  Report Type: Spontaneous
  Country: US (occurrence: None)
  Receive Date: 20150910
  Receipt Date: 20150910
  Transmission Date: 20151125
  Serious: No
  Sender: FDA-Public Use
  Company Number: None

PATIENT
  Age: 74 Year
  Sex: Female
  Weight: 87.09 kg

DRUGS (18)
  1. LIPITOR [Concomitant]
     Active Substance: ATORVASTATIN CALCIUM
  2. BISOPROLOL [Concomitant]
     Active Substance: BISOPROLOL
  3. DEXILANT [Suspect]
     Active Substance: DEXLANSOPRAZOLE
     Indication: GASTROOESOPHAGEAL REFLUX DISEASE
     Route: 048
     Dates: start: 20150618, end: 20150714
  4. LEVOTHYROXINE. [Concomitant]
     Active Substance: LEVOTHYROXINE
  5. OMEGA 3 ACID [Concomitant]
  6. LEXAPRO [Concomitant]
     Active Substance: ESCITALOPRAM OXALATE
  7. LORAZEPAM. [Concomitant]
     Active Substance: LORAZEPAM
  8. PLAVIX [Concomitant]
     Active Substance: CLOPIDOGREL BISULFATE
  9. GABAENTIN [Concomitant]
  10. ABUTERAL [Concomitant]
  11. OXYGEN. [Concomitant]
     Active Substance: OXYGEN
  12. NEBULIZER [Concomitant]
     Active Substance: DEVICE
  13. NEXIUM [Concomitant]
     Active Substance: ESOMEPRAZOLE MAGNESIUM
  14. ZETIA [Concomitant]
     Active Substance: EZETIMIBE
  15. ZOLDIPEM [Concomitant]
  16. CITRACAL [Concomitant]
     Active Substance: CALCIUM CITRATE
  17. SPIRIVA [Concomitant]
     Active Substance: TIOTROPIUM BROMIDE MONOHYDRATE
  18. SYMBACORT [Concomitant]

REACTIONS (7)
  - Hyperhidrosis [None]
  - Diarrhoea [None]
  - Abdominal pain upper [None]
  - Nausea [None]
  - Dyspnoea [None]
  - Lung disorder [None]
  - Tremor [None]

NARRATIVE: CASE EVENT DATE: 20150714
